FAERS Safety Report 19959324 (Version 1)
Quarter: 2021Q4

REPORT INFORMATION
  Report Type: Spontaneous
  Country: US (occurrence: US)
  Receive Date: 20211014
  Receipt Date: 20211014
  Transmission Date: 20220304
  Serious: Yes (Other)
  Sender: FDA-Public Use
  Company Number: None

PATIENT
  Age: 40 Year
  Sex: Female

DRUGS (6)
  1. COSENTYX [Suspect]
     Active Substance: SECUKINUMAB
     Indication: Rheumatoid arthritis
     Dosage: OTHER FREQUENCY:WEEKLY;
     Route: 058
     Dates: start: 20210904, end: 20210930
  2. COSENTYX [Suspect]
     Active Substance: SECUKINUMAB
     Indication: Psoriatic arthropathy
  3. SYNTHROID [Concomitant]
     Active Substance: LEVOTHYROXINE SODIUM
  4. IRON [Concomitant]
     Active Substance: IRON
  5. OMEPRAZOLE [Concomitant]
     Active Substance: OMEPRAZOLE
  6. NASACORT [Concomitant]
     Active Substance: TRIAMCINOLONE ACETONIDE

REACTIONS (12)
  - Diarrhoea [None]
  - Dehydration [None]
  - Dizziness [None]
  - Dry mouth [None]
  - Treatment failure [None]
  - Abdominal pain [None]
  - Muscle spasms [None]
  - Hot flush [None]
  - Oropharyngeal pain [None]
  - Rheumatoid arthritis [None]
  - Psoriatic arthropathy [None]
  - Therapy cessation [None]

NARRATIVE: CASE EVENT DATE: 20210923
